FAERS Safety Report 6660448-1 (Version None)
Quarter: 2010Q1

REPORT INFORMATION
  Report Type: 
  Country: None (occurrence: None)
  Receive Date: 20100326
  Receipt Date: 20100315
  Transmission Date: 20100710
  Serious: Yes (Life-Threatening, Hospitalization)
  Sender: FDA-Public Use
  Company Number: 1-21928687

PATIENT
  Age: 17 Year
  Sex: Male

DRUGS (2)
  1. METOCLOPRAMIDE [Suspect]
     Indication: ABDOMINAL PAIN
     Dosage: , X2, INTRAVENOUS
     Route: 042
  2. METOCLOPRAMIDE [Suspect]
     Indication: VOMITING
     Dosage: , X2, INTRAVENOUS
     Route: 042

REACTIONS (9)
  - CARCINOID TUMOUR OF THE GASTROINTESTINAL TRACT [None]
  - CIRCULATORY COLLAPSE [None]
  - DISSEMINATED INTRAVASCULAR COAGULATION [None]
  - GASTRINOMA [None]
  - GASTRITIS HAEMORRHAGIC [None]
  - LYMPHADENOPATHY [None]
  - PNEUMONIA [None]
  - RENAL TUBULAR NECROSIS [None]
  - RHABDOMYOLYSIS [None]
